FAERS Safety Report 12800248 (Version 1)
Quarter: 2016Q3

REPORT INFORMATION
  Report Type: Spontaneous
  Country: US (occurrence: US)
  Receive Date: 20160930
  Receipt Date: 20160930
  Transmission Date: 20161109
  Serious: No
  Sender: FDA-Public Use
  Company Number: US-SHIRE-US201613713

PATIENT
  Sex: Female
  Weight: 49.43 kg

DRUGS (2)
  1. NATPARA (PARATHYROID HORMONE) [Suspect]
     Active Substance: PARATHYROID HORMONE
     Indication: NEPHROLITHIASIS
     Dosage: 50 ?G, 1X/DAY:QD
     Route: 058
  2. NATPARA (PARATHYROID HORMONE) [Suspect]
     Active Substance: PARATHYROID HORMONE
     Indication: CHOLELITHIASIS

REACTIONS (2)
  - Musculoskeletal pain [Unknown]
  - Product use issue [Not Recovered/Not Resolved]
